FAERS Safety Report 21679261 (Version 1)
Quarter: 2022Q4

REPORT INFORMATION
  Report Type: Spontaneous
  Country: US (occurrence: US)
  Receive Date: 20221205
  Receipt Date: 20221205
  Transmission Date: 20230113
  Serious: No
  Sender: FDA-Public Use
  Company Number: US-STRIDES ARCOLAB LIMITED-2022SP002918

PATIENT
  Age: 69 Year
  Sex: Female

DRUGS (3)
  1. PROPAFENONE [Suspect]
     Active Substance: PROPAFENONE
     Indication: Tachycardia
     Dosage: 75 MILLIGRAM, EVERY MORNING (TABLET)
     Route: 048
  2. PROPAFENONE [Suspect]
     Active Substance: PROPAFENONE
     Indication: Arrhythmia
     Dosage: 150 MILLIGRAM, EVENING (TABLET)
     Route: 048
  3. PROPAFENONE [Suspect]
     Active Substance: PROPAFENONE
     Dosage: 150 MILLIGRAM, BID (TABLET)
     Route: 048
     Dates: start: 20220225

REACTIONS (2)
  - Dizziness [Unknown]
  - Headache [Recovered/Resolved]

NARRATIVE: CASE EVENT DATE: 20220225
